FAERS Safety Report 15474759 (Version 1)
Quarter: 2018Q4

REPORT INFORMATION
  Report Type: Spontaneous
  Country: US (occurrence: US)
  Receive Date: 20181008
  Receipt Date: 20181008
  Transmission Date: 20190205
  Serious: Yes (Other)
  Sender: FDA-Public Use
  Company Number: US-PFIZER INC-2018398807

PATIENT
  Sex: Male

DRUGS (1)
  1. PRIMATENE [Suspect]
     Active Substance: EPHEDRINE HYDROCHLORIDE\GUAIFENESIN
     Indication: ASTHMA
     Dosage: UNK

REACTIONS (1)
  - Drug dependence [Unknown]
